FAERS Safety Report 16805118 (Version 2)
Quarter: 2019Q4

REPORT INFORMATION
  Report Type: Spontaneous
  Country: PE (occurrence: PE)
  Receive Date: 20190913
  Receipt Date: 20191015
  Transmission Date: 20200122
  Serious: Yes (Hospitalization, Other)
  Sender: FDA-Public Use
  Company Number: PE-AMGEN-PERSP2019148160

PATIENT
  Age: 79 Year
  Sex: Female

DRUGS (1)
  1. PROLIA [Suspect]
     Active Substance: DENOSUMAB
     Indication: OSTEOPOROSIS
     Dosage: 60 MILLIGRAM, CYCLICAL
     Route: 058
     Dates: start: 20180704

REACTIONS (2)
  - Accident [Recovered/Resolved]
  - Radius fracture [Recovered/Resolved]

NARRATIVE: CASE EVENT DATE: 20190729
